FAERS Safety Report 7375055-5 (Version None)
Quarter: 2011Q1

REPORT INFORMATION
  Report Type: 
  Country: None (occurrence: None)
  Receive Date: 20110325
  Receipt Date: 20110322
  Transmission Date: 20110831
  Serious: Yes (Life-Threatening, Other)
  Sender: FDA-Public Use
  Company Number: PHEH2009US07334

PATIENT
  Sex: Female

DRUGS (2)
  1. VITAMIN D [Concomitant]
  2. RECLAST [Suspect]

REACTIONS (18)
  - HAIR TEXTURE ABNORMAL [None]
  - FATIGUE [None]
  - DRY EYE [None]
  - ABDOMINAL DISTENSION [None]
  - COLD SWEAT [None]
  - NAUSEA [None]
  - HYPERHIDROSIS [None]
  - CARDIAC ARREST [None]
  - VOMITING [None]
  - DRY SKIN [None]
  - WEIGHT INCREASED [None]
  - HEADACHE [None]
  - ARTHRALGIA [None]
  - JOINT LOCK [None]
  - GAIT DISTURBANCE [None]
  - PAIN [None]
  - VENTRICULAR EXTRASYSTOLES [None]
  - EXERCISE TOLERANCE DECREASED [None]
